FAERS Safety Report 19358414 (Version 2)
Quarter: 2021Q2

REPORT INFORMATION
  Report Type: Other
  Country: JO (occurrence: JO)
  Receive Date: 20210602
  Receipt Date: 20210617
  Transmission Date: 20210717
  Serious: Yes (Death)
  Sender: FDA-Public Use
  Company Number: JO-DEXPHARM-20210753

PATIENT
  Age: 60 Year
  Sex: Male

DRUGS (3)
  1. DEXAMETHASONE. [Suspect]
     Active Substance: DEXAMETHASONE
  2. CONGESTAL [Concomitant]
  3. DICLOFENC [Suspect]
     Active Substance: DICLOFENAC

REACTIONS (1)
  - Drug interaction [Fatal]
